FAERS Safety Report 7098086-1 (Version None)
Quarter: 2010Q4

REPORT INFORMATION
  Report Type: 
  Country: None (occurrence: None)
  Receive Date: 20101105
  Receipt Date: 20101025
  Transmission Date: 20110411
  Serious: Yes (Life-Threatening, Hospitalization, Disabling, Other)
  Sender: FDA-Public Use
  Company Number: 2010P1002241

PATIENT
  Age: 46 Year
  Sex: Male

DRUGS (7)
  1. OXYCONTIN [Suspect]
     Indication: BACK PAIN
     Dosage: 350 MG;X1;PO
     Route: 047
  2. OXYCONTIN [Suspect]
     Indication: OVERDOSE
     Dosage: 350 MG;X1;PO
     Route: 047
  3. OXYCONTIN [Suspect]
     Indication: BACK PAIN
     Dosage: 400 MG;X1;PO
     Route: 048
  4. OXYCONTIN [Suspect]
     Indication: OVERDOSE
     Dosage: 400 MG;X1;PO
     Route: 048
  5. CARISOPRODOL [Concomitant]
  6. DIAZEPAM [Concomitant]
  7. PREV MEDS [Concomitant]

REACTIONS (3)
  - INCORRECT DOSE ADMINISTERED [None]
  - LEUKOENCEPHALOPATHY [None]
  - TOXIC ENCEPHALOPATHY [None]
